FAERS Safety Report 6305015-4 (Version None)
Quarter: 2009Q3

REPORT INFORMATION
  Report Type: 
  Country: None (occurrence: None)
  Receive Date: 20090806
  Receipt Date: 20090728
  Transmission Date: 20100115
  Serious: Yes (Hospitalization, Other)
  Sender: FDA-Public Use
  Company Number: 2009SP017027

PATIENT
  Age: 8 Year
  Sex: Male

DRUGS (1)
  1. COPPERTONE KIDS QUICK COVER LOTION SPRAY [Suspect]
     Indication: DRUG USE FOR UNKNOWN INDICATION
     Dosage: TID; TOP
     Route: 061
     Dates: start: 20090724

REACTIONS (3)
  - BLISTER [None]
  - ERYTHEMA [None]
  - LOCAL SWELLING [None]
